FAERS Safety Report 5583910-1 (Version None)
Quarter: 2008Q1

REPORT INFORMATION
  Report Type: 
  Country: None (occurrence: None)
  Receive Date: 20080102
  Receipt Date: 20080102
  Transmission Date: 20080703
  Serious: Yes (Death)
  Sender: FDA-Public Use
  Company Number: None

PATIENT
  Sex: Male
  Weight: 88.4514 kg

DRUGS (1)
  1. CLOZARIL [Suspect]
     Indication: SCHIZOAFFECTIVE DISORDER
     Dosage: 100 MG  2-3 TIMES DAILY PO
     Route: 048
     Dates: start: 20041006, end: 20061122

REACTIONS (2)
  - CHEST PAIN [None]
  - PAIN IN EXTREMITY [None]
